FAERS Safety Report 6215943-6 (Version None)
Quarter: 2009Q2

REPORT INFORMATION
  Report Type: 
  Country: None (occurrence: None)
  Receive Date: 20090605
  Receipt Date: 20090529
  Transmission Date: 20091009
  Serious: Yes (Death, Other)
  Sender: FDA-Public Use
  Company Number: US-AMGEN-US349356

PATIENT
  Sex: Female

DRUGS (3)
  1. NPLATE [Suspect]
     Indication: IDIOPATHIC THROMBOCYTOPENIC PURPURA
     Dates: start: 20090428, end: 20090505
  2. CORTICOSTEROIDS [Concomitant]
     Dates: start: 20090227
  3. RITUXIMAB [Concomitant]
     Dates: start: 20090427

REACTIONS (2)
  - DRUG INEFFECTIVE [None]
  - UPPER GASTROINTESTINAL HAEMORRHAGE [None]
